FAERS Safety Report 17572566 (Version 1)
Quarter: 2020Q1

REPORT INFORMATION
  Report Type: Spontaneous
  Country: IL (occurrence: IL)
  Receive Date: 20200323
  Receipt Date: 20200323
  Transmission Date: 20200409
  Serious: Yes (Death, Other)
  Sender: FDA-Public Use
  Company Number: IL-ASTRAZENECA-2020SE40299

PATIENT
  Age: 59 Year
  Sex: Female

DRUGS (2)
  1. IBRANCE [Suspect]
     Active Substance: PALBOCICLIB
     Dosage: DOSE OF IBRANCE WAS REDUCED TO 75 MG ,UNKNOWN FREQUENCY
     Route: 048
  2. FASLODEX [Suspect]
     Active Substance: FULVESTRANT
     Route: 030

REACTIONS (5)
  - Haemoglobin decreased [Unknown]
  - Haematology test abnormal [Unknown]
  - Neoplasm progression [Unknown]
  - Blood iron decreased [Unknown]
  - Sepsis [Fatal]
